FAERS Safety Report 13821577 (Version 3)
Quarter: 2017Q4

REPORT INFORMATION
  Report Type: Spontaneous
  Country: KR (occurrence: KR)
  Receive Date: 20170801
  Receipt Date: 20171116
  Transmission Date: 20180320
  Serious: Yes (Other)
  Sender: FDA-Public Use
  Company Number: KR-009507513-1707KOR013080

PATIENT
  Age: 59 Year
  Sex: Male
  Weight: 67.6 kg

DRUGS (10)
  1. NOXAFIL [Suspect]
     Active Substance: POSACONAZOLE
     Indication: FUNGAL INFECTION
     Dosage: 300 MG, BID
     Route: 048
     Dates: start: 20170707, end: 20170707
  2. IDARUBICIN HYDROCHLORIDE. [Concomitant]
     Active Substance: IDARUBICIN HYDROCHLORIDE
     Indication: ACUTE MYELOID LEUKAEMIA
     Dosage: 21 MG, QD
     Route: 042
     Dates: start: 20170707, end: 20170709
  3. LEVOFLOXACIN. [Concomitant]
     Active Substance: LEVOFLOXACIN
     Dosage: 250 MG, QD
     Route: 048
     Dates: start: 20170630, end: 20170714
  4. CEFAZOLIN [Concomitant]
     Active Substance: CEFAZOLIN
     Indication: INFECTION PROPHYLAXIS
     Dosage: 2 G, TID
     Route: 042
     Dates: start: 20170715, end: 20170717
  5. METRONIDAZOLE. [Concomitant]
     Active Substance: METRONIDAZOLE
     Indication: INFECTION PROPHYLAXIS
     Dosage: 500 MG, TID
     Route: 048
     Dates: start: 20170715, end: 20170803
  6. CEFTAZIDIME. [Concomitant]
     Active Substance: CEFTAZIDIME
     Indication: INFECTION PROPHYLAXIS
     Dosage: 2 G, TID
     Route: 042
     Dates: start: 20170715, end: 20170720
  7. NOXAFIL [Suspect]
     Active Substance: POSACONAZOLE
     Dosage: 300 MG, QD
     Route: 048
     Dates: start: 20170708, end: 20170721
  8. LEVOFLOXACIN. [Concomitant]
     Active Substance: LEVOFLOXACIN
     Indication: INFECTION PROPHYLAXIS
     Dosage: 500 MG, QD
     Route: 048
     Dates: start: 20170630, end: 20170714
  9. VANCOMYCIN [Concomitant]
     Active Substance: VANCOMYCIN
     Indication: INFECTION PROPHYLAXIS
     Dosage: 1 G, TID
     Route: 042
     Dates: start: 20170721, end: 20170726
  10. AMPHOTERICIN B. [Concomitant]
     Active Substance: AMPHOTERICIN B
     Indication: INFECTION PROPHYLAXIS
     Dosage: 3 MG/KG, QD
     Route: 042
     Dates: start: 20170722, end: 20170801

REACTIONS (1)
  - Febrile neutropenia [Recovered/Resolved]

NARRATIVE: CASE EVENT DATE: 20170721
